FAERS Safety Report 22057448 (Version 1)
Quarter: 2023Q1

REPORT INFORMATION
  Report Type: Spontaneous
  Country: US (occurrence: None)
  Receive Date: 20230303
  Receipt Date: 20230303
  Transmission Date: 20230418
  Serious: Yes (Death)
  Sender: FDA-Public Use
  Company Number: US-ROCHE-3296638

PATIENT
  Sex: Male

DRUGS (2)
  1. ESBRIET [Suspect]
     Active Substance: PIRFENIDONE
     Indication: Stem cell transplant
     Dosage: ONGOING: NO
     Route: 048
     Dates: start: 20230103
  2. SIROLIMUS [Suspect]
     Active Substance: SIROLIMUS
     Indication: Stem cell transplant
     Dosage: (STRENGTH: 1 MG/ML)
     Route: 048
     Dates: start: 20220605

REACTIONS (2)
  - Death [Fatal]
  - Off label use [Unknown]
